FAERS Safety Report 8869993 (Version 1)
Quarter: 2012Q4

REPORT INFORMATION
  Report Type: Spontaneous
  Country: US (occurrence: None)
  Receive Date: 20121025
  Receipt Date: 20121025
  Transmission Date: 20130627
  Serious: No
  Sender: FDA-Public Use
  Company Number: None

PATIENT
  Age: 64 Year
  Sex: Male
  Weight: 110.5 kg

DRUGS (1)
  1. INFLIXIMAB [Suspect]
     Indication: PSORIATIC ARTHROPATHY
     Dosage: 500 MG Other IV
     Route: 042
     Dates: start: 20120502, end: 20120502

REACTIONS (11)
  - Pallor [None]
  - Cold sweat [None]
  - Syncope [None]
  - Heart rate decreased [None]
  - Pyrexia [None]
  - Chills [None]
  - Myalgia [None]
  - Arthralgia [None]
  - Hypotension [None]
  - Malaise [None]
  - Infusion related reaction [None]
